FAERS Safety Report 25428244 (Version 2)
Quarter: 2025Q3

REPORT INFORMATION
  Report Type: Spontaneous
  Country: US (occurrence: US)
  Receive Date: 20250612
  Receipt Date: 20250708
  Transmission Date: 20251021
  Serious: No
  Sender: SANOFI AVENTIS
  Company Number: US-SA-2025SA165952

PATIENT
  Age: 64 Year
  Sex: Female

DRUGS (1)
  1. DUPIXENT [Suspect]
     Active Substance: DUPILUMAB
     Indication: Nasal polyps
     Dosage: 300 MG, QOW
     Route: 058
     Dates: start: 202504

REACTIONS (9)
  - Nasopharyngitis [Recovered/Resolved]
  - Ear pruritus [Unknown]
  - Mouth ulceration [Recovered/Resolved]
  - Sinusitis [Unknown]
  - Nasal congestion [Unknown]
  - Sneezing [Unknown]
  - Nasal discharge discolouration [Unknown]
  - Lacrimation increased [Unknown]
  - Oral herpes [Recovered/Resolved]

NARRATIVE: CASE EVENT DATE: 20250101
